FAERS Safety Report 8554842-1 (Version None)
Quarter: 2012Q3

REPORT INFORMATION
  Report Type: 
  Country: None (occurrence: None)
  Receive Date: 20120731
  Receipt Date: 20120716
  Transmission Date: 20120928
  Serious: Yes (Other)
  Sender: FDA-Public Use
  Company Number: US-WATSON-2012-13211

PATIENT
  Age: 13 Month
  Sex: Male

DRUGS (1)
  1. DIPHENHYDRAMINE HYDROCHLORIDE [Suspect]
     Indication: ACCIDENTAL OVERDOSE
     Dosage: 25 MG, SINGLE
     Route: 048

REACTIONS (5)
  - TACHYCARDIA [None]
  - ACCIDENTAL OVERDOSE [None]
  - CONVULSION [None]
  - CONDITION AGGRAVATED [None]
  - STATUS EPILEPTICUS [None]
